FAERS Safety Report 6647117-9 (Version None)
Quarter: 2010Q1

REPORT INFORMATION
  Report Type: 
  Country: None (occurrence: None)
  Receive Date: 20100323
  Receipt Date: 20100311
  Transmission Date: 20100710
  Serious: Yes (Other)
  Sender: FDA-Public Use
  Company Number: PHHO2010US03956

PATIENT
  Age: 57 Year
  Sex: Female
  Weight: 98.866 kg

DRUGS (27)
  1. LOPRESSOR [Suspect]
     Dosage: 25 MG, BID
     Route: 048
     Dates: start: 20080802, end: 20080804
  2. ATIVAN [Concomitant]
  3. IMDUR [Concomitant]
  4. REGLAN [Concomitant]
  5. BIMATOPROST [Concomitant]
  6. MILK OF MAGNESIA TAB [Concomitant]
  7. CLOPIDOGREL [Concomitant]
  8. DILAUDID [Concomitant]
  9. EPTIFIBATIDE [Concomitant]
  10. POTASSIUM CHLORIDE [Concomitant]
  11. ASPIRIN [Concomitant]
  12. ATORVASTATIN CALCIUM [Concomitant]
  13. BENADRYL [Concomitant]
  14. BIVALIRUDIN [Concomitant]
  15. DARVOCET-N 100 [Concomitant]
  16. ENOXAPARIN SODIUM [Concomitant]
  17. FENTANYL [Concomitant]
  18. LIDOCAINE [Concomitant]
  19. HYDROCHLOROTHIAZIDE W/METOPROLOL TARTRATE [Concomitant]
  20. MORPHINE SULFATE [Concomitant]
  21. NITROGLYCERIN [Concomitant]
  22. NITROGLYCERIN [Concomitant]
  23. PEPCID [Concomitant]
  24. PROTONIX [Concomitant]
  25. RAMIPRIL [Concomitant]
  26. SOLU-CORTEF [Concomitant]
  27. VERSED [Concomitant]

REACTIONS (5)
  - ANGINA PECTORIS [None]
  - BRADYCARDIA [None]
  - DIZZINESS [None]
  - HYPERHIDROSIS [None]
  - MALAISE [None]
